FAERS Safety Report 11294381 (Version 1)
Quarter: 2015Q3

REPORT INFORMATION
  Report Type: Spontaneous
  Country: US (occurrence: US)
  Receive Date: 20150722
  Receipt Date: 20150722
  Transmission Date: 20151125
  Serious: Yes (Hospitalization, Other)
  Sender: FDA-Public Use
  Company Number: US-ELI_LILLY_AND_COMPANY-US200806005088

PATIENT
  Age: 66 Year
  Sex: Female

DRUGS (11)
  1. LIPITOR [Concomitant]
     Active Substance: ATORVASTATIN CALCIUM
  2. MULTIVITAMIN [Concomitant]
     Active Substance: VITAMINS
  3. FOLIC ACID. [Concomitant]
     Active Substance: FOLIC ACID
  4. VITAMIN E [Concomitant]
     Active Substance: .ALPHA.-TOCOPHEROL
  5. CALCIUM [Concomitant]
     Active Substance: CALCIUM
     Dosage: 1000 MG, UNK
  6. TRIAMPUR [Concomitant]
     Indication: FLUID RETENTION
  7. ZYRTEC [Concomitant]
     Active Substance: CETIRIZINE HYDROCHLORIDE
  8. EVISTA [Suspect]
     Active Substance: RALOXIFENE HYDROCHLORIDE
     Dosage: 60 MG, UNK
     Dates: start: 19980303, end: 20061102
  9. VITAMINS NOS [Concomitant]
     Active Substance: VITAMINS
  10. FISH OIL, HYDROGENATED [Concomitant]
     Active Substance: FISH OIL, HYDROGENATED
  11. VITAMIN C [Concomitant]
     Active Substance: ASCORBIC ACID

REACTIONS (13)
  - Metrorrhagia [Recovered/Resolved]
  - Menopause [Recovering/Resolving]
  - Visual impairment [Recovered/Resolved]
  - Activities of daily living impaired [Recovered/Resolved]
  - Endometriosis [Recovered/Resolved]
  - Transient ischaemic attack [Recovered/Resolved]
  - Dizziness [Recovered/Resolved]
  - Haemorrhage [Recovered/Resolved]
  - Muscle spasms [Recovered/Resolved]
  - Bone loss [Unknown]
  - Insomnia [Recovering/Resolving]
  - Hot flush [Recovered/Resolved]
  - Body height decreased [Not Recovered/Not Resolved]

NARRATIVE: CASE EVENT DATE: 20061028
